FAERS Safety Report 5336414-5 (Version None)
Quarter: 2007Q2

REPORT INFORMATION
  Report Type: 
  Country: None (occurrence: None)
  Receive Date: 20070523
  Receipt Date: 20070508
  Transmission Date: 20071010
  Serious: Yes (Death)
  Sender: FDA-Public Use
  Company Number: 2007RR-07463

PATIENT
  Age: 59 Year
  Sex: Male

DRUGS (5)
  1. CIPROFLOXACIN [Suspect]
     Indication: RESPIRATORY TRACT INFECTION
     Dosage: 250 MG, BID, ORAL
     Route: 048
  2. WARFARIN SODIUM [Concomitant]
  3. IMIPENEM [Concomitant]
  4. CILASTATIN [Concomitant]
  5. PREDNISOLONE [Concomitant]

REACTIONS (5)
  - DISSEMINATED INTRAVASCULAR COAGULATION [None]
  - ERYTHEMA [None]
  - MULTI-ORGAN FAILURE [None]
  - RASH MACULO-PAPULAR [None]
  - TOXIC EPIDERMAL NECROLYSIS [None]
